FAERS Safety Report 20246003 (Version 1)
Quarter: 2021Q4

REPORT INFORMATION
  Report Type: Spontaneous
  Country: US (occurrence: None)
  Receive Date: 20211228
  Receipt Date: 20211228
  Transmission Date: 20220303
  Serious: Yes (Other)
  Sender: FDA-Public Use
  Company Number: None

PATIENT
  Age: 64 Year
  Sex: Female
  Weight: 85.5 kg

DRUGS (3)
  1. DUPIXENT [Suspect]
     Active Substance: DUPILUMAB
     Indication: Dermatitis atopic
     Dosage: OTHER FREQUENCY : EVERY  2 WEEKS;?
     Route: 030
     Dates: start: 20211118
  2. DUPIXENT [Suspect]
     Active Substance: DUPILUMAB
     Indication: Dermatitis contact
  3. DUPIXENT [Concomitant]
     Active Substance: DUPILUMAB
     Dates: start: 20211118

REACTIONS (1)
  - Intermenstrual bleeding [None]

NARRATIVE: CASE EVENT DATE: 20211226
